FAERS Safety Report 5366294-3 (Version None)
Quarter: 2007Q2

REPORT INFORMATION
  Report Type: 
  Country: None (occurrence: None)
  Receive Date: 20070619
  Receipt Date: 20070619
  Transmission Date: 20071010
  Serious: Yes (Other)
  Sender: FDA-Public Use
  Company Number: None

PATIENT
  Age: 60 Year
  Sex: Male

DRUGS (3)
  1. ALTEPLASE 50 MG GENENTECH [Suspect]
     Indication: CEREBRAL INFARCTION
     Dosage: 1X IV
     Route: 042
     Dates: start: 20070314, end: 20070314
  2. LABETALOL HCL [Suspect]
     Indication: HYPERTENSION
     Dosage: IV
     Route: 042
     Dates: start: 20070314, end: 20070314
  3. ADVAIR DISKUS 100/50 [Concomitant]

REACTIONS (1)
  - ANGIOEDEMA [None]
